FAERS Safety Report 7289443-9 (Version None)
Quarter: 2011Q1

REPORT INFORMATION
  Report Type: 
  Country: None (occurrence: None)
  Receive Date: 20110211
  Receipt Date: 20110202
  Transmission Date: 20110831
  Serious: Yes (Other)
  Sender: FDA-Public Use
  Company Number: GB-SANOFI-AVENTIS-2011SA007189

PATIENT
  Age: 60 Year
  Sex: Male
  Weight: 88 kg

DRUGS (1)
  1. XATRAL XL [Suspect]
     Indication: URINARY TRACT OBSTRUCTION
     Route: 048
     Dates: start: 20060629, end: 20060704

REACTIONS (2)
  - CHEST PAIN [None]
  - ANGINA PECTORIS [None]
